FAERS Safety Report 21992038 (Version 4)
Quarter: 2023Q1

REPORT INFORMATION
  Report Type: Report from Study
  Country: HU (occurrence: HU)
  Receive Date: 20230214
  Receipt Date: 20230302
  Transmission Date: 20230417
  Serious: Yes (Death, Life-Threatening, Hospitalization, Other)
  Sender: FDA-Public Use
  Company Number: HU-AMGEN-HUNCT2023002600

PATIENT
  Age: 58 Year
  Sex: Female

DRUGS (15)
  1. CARFILZOMIB [Suspect]
     Active Substance: CARFILZOMIB
     Indication: Plasma cell myeloma refractory
     Dosage: 70 MILLIGRAM/SQ. METER  DAYS 1, 8, AND 15 OF EACH 28 DAY CYCLE, EVERY 1 WEEKS
     Route: 040
     Dates: start: 20220628
  2. VENETOCLAX [Suspect]
     Active Substance: VENETOCLAX
     Indication: Plasma cell myeloma refractory
     Dosage: 400 MILLIGRAM, EVERY 1 DAYS
     Route: 048
     Dates: start: 20220628, end: 20221219
  3. DEXAMETHASONE [Suspect]
     Active Substance: DEXAMETHASONE
     Indication: Plasma cell myeloma refractory
     Dosage: 40 MILLIGRAM,  CYCLE 1-9 ON DAYS 1, 8, 15 AND 22, CYCLE - 28 DAYS, EVERY 1 WEEK
     Route: 048
     Dates: start: 20220628, end: 20221220
  4. LECALPINE [Concomitant]
     Indication: Hypertension
     Dosage: 10 MILLIGRAM, BID
     Dates: start: 2020
  5. TELVIRAN [Concomitant]
     Indication: Hypertension
     Dosage: 500 MILLIGRAM,
     Dates: start: 2020
  6. EVUSHELD [Concomitant]
     Active Substance: CILGAVIMAB\TIXAGEVIMAB
     Indication: COVID-19 prophylaxis
     Dosage: UNK
     Dates: start: 20221122, end: 20221122
  7. BISOPROLOL [Concomitant]
     Active Substance: BISOPROLOL
     Indication: Hypertension
     Dosage: 5 MILLIGRAM, QD
     Dates: start: 2020
  8. PANTOPRAZOLE SODIUM [Concomitant]
     Active Substance: PANTOPRAZOLE SODIUM
     Indication: Gastrointestinal disorder prophylaxis
     Dosage: 20 MILLIGRAM, QD
     Dates: start: 2018
  9. CALCIUM [Concomitant]
     Active Substance: CALCIUM
     Indication: Plasma cell myeloma
     Dosage: 1000 MILLIGRAM, BID
     Dates: start: 201609
  10. VITAMIN D [Concomitant]
     Active Substance: VITAMIN D NOS
     Indication: Plasma cell myeloma
     Dosage: 400 INTERNATIONAL UNIT, QD
     Dates: start: 201609
  11. LEVOFLOXACIN [Concomitant]
     Active Substance: LEVOFLOXACIN
     Indication: Antibiotic prophylaxis
     Dosage: 250 MILLIGRAM, QD
     Dates: start: 20220618
  12. BACTRIM [Concomitant]
     Active Substance: SULFAMETHOXAZOLE\TRIMETHOPRIM
     Indication: Antibiotic prophylaxis
     Dosage: 2X400/80 MG, EVERY 2 DAYS
     Dates: start: 20220618
  13. ACYCLOVIR [Concomitant]
     Active Substance: ACYCLOVIR
     Indication: Antibiotic prophylaxis
     Dosage: 400 MILLIGRAM, BID
     Dates: start: 20220618
  14. ELIQUIS [Concomitant]
     Active Substance: APIXABAN
     Indication: Venous thrombosis
     Dosage: 5 MILLIGRAM, BID
     Dates: start: 202201
  15. ELIQUIS [Concomitant]
     Active Substance: APIXABAN
     Indication: Venous thrombosis

REACTIONS (4)
  - Pneumonia bacterial [Unknown]
  - Sepsis [Fatal]
  - Multiple organ dysfunction syndrome [Fatal]
  - Sepsis [Recovered/Resolved]

NARRATIVE: CASE EVENT DATE: 20221231
